FAERS Safety Report 11685827 (Version 1)
Quarter: 2015Q4

REPORT INFORMATION
  Report Type: Spontaneous
  Country: US (occurrence: US)
  Receive Date: 20151030
  Receipt Date: 20151030
  Transmission Date: 20160304
  Serious: Yes (Disabling, Other)
  Sender: FDA-Public Use
  Company Number: US-MYLANLABS-2015M1037063

PATIENT

DRUGS (2)
  1. VANCOMYCIN [Suspect]
     Active Substance: VANCOMYCIN
     Indication: ANTIBIOTIC PROPHYLAXIS
     Dosage: 0.1MG/0.1ML
     Route: 050
  2. HYALURONIC ACID [Concomitant]
     Active Substance: HYALURONIC ACID
     Dosage: UNK
     Route: 065

REACTIONS (3)
  - Glaucoma [Unknown]
  - Type IV hypersensitivity reaction [Not Recovered/Not Resolved]
  - Retinal vasculitis [Not Recovered/Not Resolved]
